FAERS Safety Report 17450088 (Version 1)
Quarter: 2020Q1

REPORT INFORMATION
  Report Type: Spontaneous
  Country: IT (occurrence: IT)
  Receive Date: 20200224
  Receipt Date: 20200224
  Transmission Date: 20200409
  Serious: Yes (Hospitalization)
  Sender: FDA-Public Use
  Company Number: NVSC2020IT028973

PATIENT
  Age: 23 Year
  Sex: Male

DRUGS (3)
  1. DECADRON [Suspect]
     Active Substance: DEXAMETHASONE
     Indication: INTENTIONAL OVERDOSE
     Dosage: 10 DF, TOTAL
     Route: 048
     Dates: start: 20191102, end: 20191102
  2. IBUPROFEN. [Suspect]
     Active Substance: IBUPROFEN
     Indication: INTENTIONAL OVERDOSE
     Dosage: 3200 MG, TOTAL
     Route: 048
     Dates: start: 20191102, end: 20191102
  3. NEO-OPTALIDON [Suspect]
     Active Substance: ACETAMINOPHEN\CAFFEINE\PROPYPHENAZONE
     Indication: INTENTIONAL OVERDOSE
     Dosage: 8 DF, TOTAL
     Route: 048
     Dates: start: 20191102, end: 20191102

REACTIONS (2)
  - Drug abuse [Recovering/Resolving]
  - Abdominal pain [Recovering/Resolving]

NARRATIVE: CASE EVENT DATE: 20191102
